FAERS Safety Report 8391299-8 (Version None)
Quarter: 2012Q2

REPORT INFORMATION
  Report Type: 
  Country: None (occurrence: None)
  Receive Date: 20120529
  Receipt Date: 20120109
  Transmission Date: 20120825
  Serious: No
  Sender: FDA-Public Use
  Company Number: US-ABBOTT-12P-163-0890800-00

PATIENT
  Sex: Male
  Weight: 63.56 kg

DRUGS (5)
  1. BENAZEPRIL HYDROCHLORIDE [Concomitant]
     Indication: HYPERTENSION
  2. ASPIRIN [Concomitant]
     Indication: HYPERTENSION
  3. IBUPROFEN [Concomitant]
     Indication: SCIATICA
  4. ZEMPLAR [Suspect]
     Indication: PARATHYROID DISORDER
     Dates: start: 20120101
  5. AMLODIPINE BESYLATE [Concomitant]
     Indication: HYPERTENSION

REACTIONS (2)
  - HYPERTENSION [None]
  - FEELING ABNORMAL [None]
